FAERS Safety Report 5267505-5 (Version None)
Quarter: 2007Q1

REPORT INFORMATION
  Report Type: 
  Country: None (occurrence: None)
  Receive Date: 20061213
  Receipt Date: 20040325
  Transmission Date: 20070707
  Serious: No
  Sender: FDA-Public Use
  Company Number: 2004UW05916

PATIENT
  Age: 76 Year
  Sex: Female
  Weight: 80.7403 kg

DRUGS (1)
  1. TAMOXIFEN [Suspect]
     Indication: BREAST CANCER
     Dosage: 20 MG PO
     Route: 048
     Dates: start: 19890101, end: 19960101

REACTIONS (7)
  - BREAST CANCER RECURRENT [None]
  - FEELING ABNORMAL [None]
  - FEELING HOT [None]
  - HYPOTRICHOSIS [None]
  - TRICHORRHEXIS [None]
  - VAGINAL DISORDER [None]
  - WEIGHT INCREASED [None]
